FAERS Safety Report 15977437 (Version 2)
Quarter: 2019Q1

REPORT INFORMATION
  Report Type: Report from Study
  Country: US (occurrence: US)
  Receive Date: 20190218
  Receipt Date: 20190321
  Transmission Date: 20190418
  Serious: Yes (Other)
  Sender: FDA-Public Use
  Company Number: US-REGENERON PHARMACEUTICALS, INC.-2019-17608

PATIENT

DRUGS (2)
  1. EYLEA [Suspect]
     Active Substance: AFLIBERCEPT
     Indication: DIABETIC EYE DISEASE
     Dosage: ONCE A MONTH, LEFT EYE
     Dates: start: 2012, end: 2016
  2. EYLEA [Suspect]
     Active Substance: AFLIBERCEPT
     Dosage: ONCE A MONTH, LEFT EYE, LAST DOSE
     Dates: start: 2016, end: 2016

REACTIONS (2)
  - Visual acuity reduced [Not Recovered/Not Resolved]
  - Eye infection [Not Recovered/Not Resolved]

NARRATIVE: CASE EVENT DATE: 201502
